FAERS Safety Report 9774978 (Version 3)
Quarter: 2014Q3

REPORT INFORMATION
  Report Type: Spontaneous
  Country: US (occurrence: US)
  Receive Date: 20131220
  Receipt Date: 20140801
  Transmission Date: 20150326
  Serious: Yes (Hospitalization, Other)
  Sender: FDA-Public Use
  Company Number: US-ASTRAZENECA-2013SE91419

PATIENT
  Age: 64 Year
  Sex: Male
  Weight: 108.9 kg

DRUGS (14)
  1. BRILINTA [Suspect]
     Active Substance: TICAGRELOR
     Indication: CARDIAC DISORDER
     Route: 048
     Dates: start: 20131120
  2. COQ10 [Concomitant]
     Active Substance: UBIDECARENONE
     Indication: ADVERSE DRUG REACTION
  3. FLUOXETINE [Concomitant]
     Active Substance: FLUOXETINE\FLUOXETINE HYDROCHLORIDE
     Indication: NERVOUSNESS
  4. XARELTO [Concomitant]
     Active Substance: RIVAROXABAN
     Indication: ANTICOAGULANT THERAPY
  5. OMEPRAZOLE. [Suspect]
     Active Substance: OMEPRAZOLE
     Indication: GASTROOESOPHAGEAL REFLUX DISEASE
     Route: 048
     Dates: start: 2008
  6. CRESTOR [Suspect]
     Active Substance: ROSUVASTATIN CALCIUM
     Indication: CARDIAC DISORDER
     Route: 048
     Dates: start: 2012
  7. BRILINTA [Suspect]
     Active Substance: TICAGRELOR
     Indication: CARDIOVERSION
     Route: 048
     Dates: start: 20131120
  8. LEVOTHYROXINE [Concomitant]
     Active Substance: LEVOTHYROXINE
     Indication: THYROID DISORDER
  9. CRESTOR [Suspect]
     Active Substance: ROSUVASTATIN CALCIUM
     Indication: BLOOD CHOLESTEROL ABNORMAL
     Route: 048
     Dates: start: 2012
  10. BRILINTA [Suspect]
     Active Substance: TICAGRELOR
     Indication: STENT PLACEMENT
     Route: 048
     Dates: start: 20131120
  11. LOSARTAN [Concomitant]
     Active Substance: LOSARTAN
     Indication: BLOOD PRESSURE ABNORMAL
  12. ALOPRAZOLAM [Concomitant]
     Indication: PANIC ATTACK
  13. NIASPAN ER [Concomitant]
     Active Substance: NIACIN
     Indication: CARDIOVERSION
  14. ASPIRIN. [Concomitant]
     Active Substance: ASPIRIN
     Indication: CARDIAC DISORDER

REACTIONS (14)
  - Blood urine present [Recovered/Resolved]
  - Renal artery stenosis [Unknown]
  - Pruritus [Unknown]
  - Visual impairment [Unknown]
  - Heart rate decreased [Recovered/Resolved]
  - Contusion [Unknown]
  - Cataract [Unknown]
  - Erythema [Unknown]
  - Photophobia [Unknown]
  - Attention deficit/hyperactivity disorder [Unknown]
  - Asthenia [Unknown]
  - Sleep apnoea syndrome [Unknown]
  - Atrial fibrillation [Recovered/Resolved]
  - Hot flush [Unknown]

NARRATIVE: CASE EVENT DATE: 2012
